FAERS Safety Report 25206416 (Version 1)
Quarter: 2025Q2

REPORT INFORMATION
  Report Type: Report from Study
  Country: CA (occurrence: CA)
  Receive Date: 20250417
  Receipt Date: 20250417
  Transmission Date: 20250716
  Serious: Yes (Other)
  Sender: ABBVIE
  Company Number: CA-ABBVIE-6227452

PATIENT
  Age: 69 Year
  Sex: Female

DRUGS (1)
  1. RINVOQ [Suspect]
     Active Substance: UPADACITINIB
     Indication: Psoriatic arthropathy
     Dosage: FORM STRENGTH 15 MILLIGRAMS
     Route: 048
     Dates: end: 20250109

REACTIONS (14)
  - Cataract [Unknown]
  - Urinary tract disorder [Recovered/Resolved]
  - COVID-19 [Recovered/Resolved]
  - Influenza like illness [Recovered/Resolved]
  - Dysstasia [Recovered/Resolved]
  - Asthenia [Unknown]
  - Photophobia [Unknown]
  - Hyperacusis [Unknown]
  - Urinary tract discomfort [Unknown]
  - Memory impairment [Unknown]
  - Tooth erosion [Unknown]
  - Rash [Unknown]
  - Muscle spasms [Unknown]
  - Viral infection [Recovered/Resolved]

NARRATIVE: CASE EVENT DATE: 20250101
